FAERS Safety Report 12266033 (Version 2)
Quarter: 2016Q2

REPORT INFORMATION
  Report Type: Spontaneous
  Country: CL (occurrence: CL)
  Receive Date: 20160413
  Receipt Date: 20160422
  Transmission Date: 20160815
  Serious: Yes (Hospitalization)
  Sender: FDA-Public Use
  Company Number: CL-BIOMARINAP-CL-2016-109463

PATIENT
  Sex: Male

DRUGS (1)
  1. NAGLAZYME [Suspect]
     Active Substance: GALSULFASE
     Indication: MUCOPOLYSACCHARIDOSIS VI
     Dosage: 25 MG, QW
     Route: 065
     Dates: start: 20130826

REACTIONS (2)
  - Chronic respiratory disease [Not Recovered/Not Resolved]
  - Respiratory symptom [Not Recovered/Not Resolved]
